FAERS Safety Report 7533629-2 (Version None)
Quarter: 2011Q2

REPORT INFORMATION
  Report Type: 
  Country: None (occurrence: None)
  Receive Date: 20110608
  Receipt Date: 20060309
  Transmission Date: 20111010
  Serious: Yes (Hospitalization)
  Sender: FDA-Public Use
  Company Number: PHNU2006DE01270

PATIENT
  Sex: Female

DRUGS (7)
  1. PROPULSIN [Concomitant]
  2. JODETTEN - SLOW RELEASE [Concomitant]
  3. CARBAMAZEPINE [Concomitant]
     Dosage: 800 MG, DAILY
  4. TAXILAN [Concomitant]
  5. PROMETHAZINE HCL [Concomitant]
  6. CITALOPRAM HYDROBROMIDE [Concomitant]
     Dosage: 40 MG, DAILY
  7. ESTRADIOL VALERATE [Suspect]
     Indication: HORMONE REPLACEMENT THERAPY
     Route: 048
     Dates: start: 20041001, end: 20051201

REACTIONS (7)
  - HEMIPARESIS [None]
  - CEREBROVASCULAR DISORDER [None]
  - CEREBROVASCULAR ACCIDENT [None]
  - HYPOAESTHESIA [None]
  - MOTOR DYSFUNCTION [None]
  - FALL [None]
  - GAIT DISTURBANCE [None]
